FAERS Safety Report 12737758 (Version 3)
Quarter: 2017Q4

REPORT INFORMATION
  Report Type: Spontaneous
  Country: HU (occurrence: HU)
  Receive Date: 20160913
  Receipt Date: 20171228
  Transmission Date: 20180320
  Serious: Yes (Hospitalization, Other)
  Sender: FDA-Public Use
  Company Number: HU-BAYER-2016-163906

PATIENT
  Sex: Male

DRUGS (5)
  1. BICALUTAMIDE. [Concomitant]
     Active Substance: BICALUTAMIDE
     Dosage: UNK
     Dates: start: 201604
  2. WARFARIN [Concomitant]
     Active Substance: WARFARIN
     Dosage: 12,5 MG
  3. XOFIGO [Suspect]
     Active Substance: RADIUM RA-223 DICHLORIDE
     Indication: METASTASES TO BONE
  4. DEGARELIX [Concomitant]
     Active Substance: DEGARELIX
     Dosage: UNK
     Dates: start: 201509
  5. XOFIGO [Suspect]
     Active Substance: RADIUM RA-223 DICHLORIDE
     Indication: PROSTATE CANCER STAGE IV
     Dosage: UNK
     Dates: start: 20160802, end: 20160802

REACTIONS (4)
  - Epistaxis [None]
  - Agranulocytosis [Recovering/Resolving]
  - Thrombocytopenia [None]
  - Haematuria [None]

NARRATIVE: CASE EVENT DATE: 201608
